FAERS Safety Report 9443122 (Version 6)
Quarter: 2015Q2

REPORT INFORMATION
  Report Type: Spontaneous
  Country: CA (occurrence: CA)
  Receive Date: 20130806
  Receipt Date: 20150512
  Transmission Date: 20150821
  Serious: Yes (Hospitalization, Other)
  Sender: FDA-Public Use
  Company Number: CA-ROCHE-1255971

PATIENT
  Age: 31 Year
  Sex: Male

DRUGS (7)
  1. XOLAIR [Suspect]
     Active Substance: OMALIZUMAB
     Route: 058
     Dates: start: 20141029
  2. SYMBICORT [Concomitant]
     Active Substance: BUDESONIDE\FORMOTEROL FUMARATE DIHYDRATE
  3. SINGULAIR [Concomitant]
     Active Substance: MONTELUKAST SODIUM
  4. SPIRIVA [Concomitant]
     Active Substance: TIOTROPIUM BROMIDE MONOHYDRATE
  5. XOLAIR [Suspect]
     Active Substance: OMALIZUMAB
     Indication: ASTHMA
     Route: 058
     Dates: start: 20130304
  6. BRICANYL [Concomitant]
     Active Substance: TERBUTALINE SULFATE
  7. XOLAIR [Suspect]
     Active Substance: OMALIZUMAB
     Route: 058
     Dates: start: 20130920

REACTIONS (11)
  - Nuchal rigidity [Unknown]
  - Rhinorrhoea [Unknown]
  - Gastroenteritis viral [Recovering/Resolving]
  - Injection site pain [Recovering/Resolving]
  - Hepatitis viral [Recovered/Resolved]
  - Cough [Unknown]
  - Headache [Unknown]
  - Musculoskeletal stiffness [Unknown]
  - Nasopharyngitis [Unknown]
  - Injection site bruising [Unknown]
  - Bacterial infection [Unknown]

NARRATIVE: CASE EVENT DATE: 201306
